FAERS Safety Report 21993332 (Version 1)
Quarter: 2023Q1

REPORT INFORMATION
  Report Type: Spontaneous
  Country: US (occurrence: US)
  Receive Date: 20230215
  Receipt Date: 20230215
  Transmission Date: 20230418
  Serious: No
  Sender: FDA-Public Use
  Company Number: US-GSK-US2023018959

PATIENT
  Sex: Male

DRUGS (2)
  1. NUCALA [Suspect]
     Active Substance: MEPOLIZUMAB
     Indication: Asthma
     Dosage: 100 MG, Z(MONTHLY)
     Dates: start: 2018
  2. ALBUTEROL [Suspect]
     Active Substance: ALBUTEROL
     Indication: Asthma
     Dosage: UNK

REACTIONS (2)
  - Inappropriate schedule of product administration [Recovering/Resolving]
  - Therapy interrupted [Unknown]

NARRATIVE: CASE EVENT DATE: 20200101
